FAERS Safety Report 16044224 (Version 2)
Quarter: 2019Q1

REPORT INFORMATION
  Report Type: Report from Study
  Country: IT (occurrence: IT)
  Receive Date: 20190306
  Receipt Date: 20190313
  Transmission Date: 20190418
  Serious: Yes (Hospitalization)
  Sender: FDA-Public Use
  Company Number: IT-MYLANLABS-2019M1020526

PATIENT
  Age: 36 Year
  Sex: Male

DRUGS (6)
  1. KETODOL /01248501/ [Suspect]
     Active Substance: KETOPROFEN\SUCRALFATE
     Indication: PRODUCT USED FOR UNKNOWN INDICATION
     Dosage: UNK
  2. PREDNISONE. [Suspect]
     Active Substance: PREDNISONE
     Indication: PRODUCT USED FOR UNKNOWN INDICATION
     Dosage: 250 MILLIGRAM, TOTAL
     Route: 048
     Dates: start: 20180818, end: 20180818
  3. ARIPIPRAZOLE. [Suspect]
     Active Substance: ARIPIPRAZOLE
     Indication: PRODUCT USED FOR UNKNOWN INDICATION
     Dosage: 3000 MILLIGRAM, TOTAL
     Route: 048
     Dates: start: 20180818, end: 20180818
  4. DICLOFENAC [Suspect]
     Active Substance: DICLOFENAC
     Indication: PRODUCT USED FOR UNKNOWN INDICATION
     Dosage: UNK
  5. PARACETAMOL [Suspect]
     Active Substance: ACETAMINOPHEN
     Indication: PRODUCT USED FOR UNKNOWN INDICATION
     Dosage: 7000 MILLIGRAM, TOTAL
     Route: 048
     Dates: start: 20180818, end: 20180818
  6. HALOPERIDOL. [Suspect]
     Active Substance: HALOPERIDOL
     Indication: PRODUCT USED FOR UNKNOWN INDICATION
     Dosage: 30 MILLIGRAM, TOTAL
     Route: 048
     Dates: start: 20180818, end: 20180818

REACTIONS (4)
  - Sopor [Unknown]
  - Suicide attempt [Unknown]
  - Bradykinesia [Unknown]
  - Drug abuse [Unknown]

NARRATIVE: CASE EVENT DATE: 20180818
